FAERS Safety Report 4622130-1 (Version None)
Quarter: 2005Q1

REPORT INFORMATION
  Report Type: 
  Country: None (occurrence: None)
  Receive Date: 20050328
  Receipt Date: 20050316
  Transmission Date: 20050727
  Serious: Yes (Other)
  Sender: FDA-Public Use
  Company Number: MEDI-0003039

PATIENT
  Age: 12 Month
  Sex: Female

DRUGS (2)
  1. SYNAGIS [Suspect]
     Indication: ANTIVIRAL PROPHYLAXIS
     Dosage: 1 IN 30 D
     Dates: start: 20041001, end: 20001001
  2. SYNAGIS [Suspect]
     Indication: ANTIVIRAL PROPHYLAXIS
     Dosage: 1 IN 30 D
     Dates: start: 20050301, end: 20050301

REACTIONS (1)
  - BRONCHOSPASM [None]
